FAERS Safety Report 9999157 (Version 1)
Quarter: 2014Q1

REPORT INFORMATION
  Report Type: Spontaneous
  Country: IN (occurrence: None)
  Receive Date: 20140310
  Receipt Date: 20140310
  Transmission Date: 20141002
  Serious: Yes (Other)
  Sender: FDA-Public Use
  Company Number: 2014P1001831

PATIENT
  Age: 26 Year
  Sex: Male

DRUGS (2)
  1. PHENYTOIN [Suspect]
     Indication: COMPLEX PARTIAL SEIZURES
  2. PHENOBARBITAL [Suspect]
     Indication: COMPLEX PARTIAL SEIZURES

REACTIONS (14)
  - Suicide attempt [None]
  - Emotional disorder [None]
  - Loss of consciousness [None]
  - Abnormal behaviour [None]
  - Irritability [None]
  - Impulsive behaviour [None]
  - Educational problem [None]
  - Rales [None]
  - Complex partial seizures [None]
  - Incorrect dose administered [None]
  - Heart rate increased [None]
  - Respiratory rate increased [None]
  - Oxygen saturation decreased [None]
  - Depressed mood [None]
